FAERS Safety Report 6465133-7 (Version None)
Quarter: 2009Q4

REPORT INFORMATION
  Report Type: 
  Country: None (occurrence: None)
  Receive Date: 20091201
  Receipt Date: 20091119
  Transmission Date: 20100525
  Serious: Yes (Other)
  Sender: FDA-Public Use
  Company Number: US-TEVA-215613USA

PATIENT
  Sex: Female
  Weight: 59.02 kg

DRUGS (2)
  1. CLARAVIS [Suspect]
     Route: 048
     Dates: start: 20090624, end: 20091030
  2. BIRTH CONTROL PILLS [Concomitant]
     Indication: CONTRACEPTION
     Route: 048

REACTIONS (2)
  - RECTAL HAEMORRHAGE [None]
  - UNINTENDED PREGNANCY [None]
